FAERS Safety Report 15882613 (Version 1)
Quarter: 2019Q1

REPORT INFORMATION
  Report Type: Report from Study
  Country: US (occurrence: US)
  Receive Date: 20190129
  Receipt Date: 20190129
  Transmission Date: 20190417
  Serious: No
  Sender: FDA-Public Use
  Company Number: US-CELGENEUS-USA-20190107937

PATIENT
  Age: 53 Year
  Sex: Female
  Weight: 54.48 kg

DRUGS (1)
  1. OTEZLA [Suspect]
     Active Substance: APREMILAST
     Indication: PSORIASIS
     Dosage: 20 MILLIGRAM
     Route: 048
     Dates: start: 201803, end: 201807

REACTIONS (4)
  - Nausea [Recovered/Resolved]
  - Upper respiratory tract infection [Recovered/Resolved]
  - Abdominal pain upper [Recovered/Resolved]
  - Constipation [Recovered/Resolved]

NARRATIVE: CASE EVENT DATE: 201803
